FAERS Safety Report 18448544 (Version 1)
Quarter: 2020Q4

REPORT INFORMATION
  Report Type: Spontaneous
  Country: GB (occurrence: GB)
  Receive Date: 20201031
  Receipt Date: 20201031
  Transmission Date: 20210114
  Serious: Yes (Other)
  Sender: FDA-Public Use
  Company Number: GB-TEVA-2020-GB-1842848

PATIENT
  Age: 83 Year
  Sex: Female
  Weight: 46 kg

DRUGS (20)
  1. IRBESARTAN. [Concomitant]
     Active Substance: IRBESARTAN
     Dosage: 1 DOSAGE FORMS DAILY; EVERY MORNING
     Dates: start: 20190718
  2. LAXIDO [Concomitant]
     Active Substance: POLYETHYLENE GLYCOL 3350\POTASSIUM CHLORIDE\SODIUM BICARBONATE\SODIUM CHLORIDE
     Dosage: 1 OR 2 DAILY.
     Dates: start: 20200709, end: 20200724
  3. TRIMETHOPRIM. [Concomitant]
     Active Substance: TRIMETHOPRIM
     Dosage: 2 DOSAGE FORMS
     Dates: start: 20200824, end: 20200831
  4. CASSIA [Concomitant]
     Dosage: 2 DOSAGE FORMS DAILY; AT NIGHT
     Dates: start: 20200227
  5. PARACETAMOL [Concomitant]
     Active Substance: ACETAMINOPHEN
     Dosage: 4 DOSAGE FORMS DAILY;
     Dates: start: 20190718
  6. FOSTAIR [Concomitant]
     Active Substance: BECLOMETHASONE\FORMOTEROL
     Dosage: 4 DOSAGE FORMS
     Dates: start: 20200817, end: 20200916
  7. PREGABALIN. [Concomitant]
     Active Substance: PREGABALIN
     Dosage: 2 DOSAGE FORMS
     Dates: start: 20200227
  8. SYMBICORT [Concomitant]
     Active Substance: BUDESONIDE\FORMOTEROL FUMARATE DIHYDRATE
     Dosage: 4 DOSAGE FORMS
     Dates: start: 20200804, end: 20200903
  9. OVESTIN [Concomitant]
     Active Substance: ESTRIOL
     Dosage: APPLY AT NIGHT. UNIT DOSE: 2 DOSAGE FORMS
     Dates: start: 20190718
  10. BUTEC [Concomitant]
     Active Substance: BUPRENORPHINE
     Dosage: APPLY. UNIT DOSE: 1 DOSAGE FORMS
     Dates: start: 20200227
  11. SALBUTAMOL [Concomitant]
     Active Substance: ALBUTEROL
     Dosage: 4 DOSAGE FORMS DAILY;
     Route: 055
     Dates: start: 20190718
  12. FENBID [Concomitant]
     Active Substance: IBUPROFEN
     Dosage: APPLY 3-4 TIMES A DAY.
     Dates: start: 20200611
  13. ADCAL [Concomitant]
     Dosage: 2 DOSAGE FORMS
     Dates: start: 20190718
  14. CLOBETASOL PROPIONATE. [Concomitant]
     Active Substance: CLOBETASOL PROPIONATE
     Dosage: APPLY 1-2 TIMES A DAY.
     Dates: start: 20190718
  15. ALENDRONIC ACID [Concomitant]
     Active Substance: ALENDRONIC ACID
     Dosage: 1 DOSAGE FORMS
     Dates: start: 20190718
  16. SALMETEROL [Concomitant]
     Active Substance: SALMETEROL
     Dosage: 4 DOSAGE FORMS
     Route: 055
     Dates: start: 20200717, end: 20200816
  17. FLUOXETINE [Suspect]
     Active Substance: FLUOXETINE HYDROCHLORIDE
     Indication: AFFECTIVE DISORDER
     Dosage: 20 MG
     Route: 065
     Dates: start: 20200928, end: 20201001
  18. TIOTROPIUM [Concomitant]
     Active Substance: TIOTROPIUM
     Dosage: 1 DOSAGE FORMS
     Route: 055
     Dates: start: 20200420
  19. LACTULOSE. [Concomitant]
     Active Substance: LACTULOSE
     Dosage: 30 ML
     Dates: start: 20190718
  20. LANSOPRAZOLE. [Concomitant]
     Active Substance: LANSOPRAZOLE
     Dosage: 1 DOSAGE FORMS
     Dates: start: 20200806, end: 20200903

REACTIONS (1)
  - Malaise [Recovered/Resolved]

NARRATIVE: CASE EVENT DATE: 20201001
